FAERS Safety Report 16771842 (Version 1)
Quarter: 2019Q3

REPORT INFORMATION
  Report Type: Spontaneous
  Country: US (occurrence: US)
  Receive Date: 20190904
  Receipt Date: 20190904
  Transmission Date: 20191005
  Serious: No
  Sender: FDA-Public Use
  Company Number: US-BAYER-2019-162195

PATIENT
  Age: 39 Year
  Sex: Female
  Weight: 73 kg

DRUGS (1)
  1. MIRALAX [Suspect]
     Active Substance: POLYETHYLENE GLYCOL 3350
     Indication: GASTROINTESTINAL DISORDER
     Dosage: 8.5 G
     Route: 048
     Dates: start: 20190902, end: 20190902

REACTIONS (5)
  - Throat tightness [Not Recovered/Not Resolved]
  - Posture abnormal [Not Recovered/Not Resolved]
  - Incorrect dose administered [Unknown]
  - Oropharyngeal discomfort [Not Recovered/Not Resolved]
  - Chest discomfort [Not Recovered/Not Resolved]

NARRATIVE: CASE EVENT DATE: 20190902
